FAERS Safety Report 5545247-6 (Version None)
Quarter: 2007Q4

REPORT INFORMATION
  Report Type: 
  Country: None (occurrence: None)
  Receive Date: 20071123
  Receipt Date: 20070406
  Transmission Date: 20080405
  Serious: Yes (Hospitalization)
  Sender: FDA-Public Use
  Company Number: 35765

PATIENT
  Age: 67 Year
  Sex: Male

DRUGS (1)
  1. LEUCOVORIN CALCIUM [Suspect]
     Indication: METASTATIC GASTRIC CANCER
     Dosage: 200 MG/SQ. METER
     Dates: start: 20070320, end: 20070320

REACTIONS (3)
  - ABDOMINAL PAIN [None]
  - FATIGUE [None]
  - LEUKOPENIA [None]
